FAERS Safety Report 15980902 (Version 1)
Quarter: 2019Q1

REPORT INFORMATION
  Report Type: Spontaneous
  Country: JP (occurrence: JP)
  Receive Date: 20190219
  Receipt Date: 20190219
  Transmission Date: 20190418
  Serious: Yes (Other)
  Sender: FDA-Public Use
  Company Number: JP-PFIZER INC-2019067665

PATIENT
  Age: 9 Decade
  Sex: Male

DRUGS (1)
  1. FESOTERODINE [Suspect]
     Active Substance: FESOTERODINE

REACTIONS (2)
  - Constipation [Recovering/Resolving]
  - Colitis ischaemic [Recovering/Resolving]
